FAERS Safety Report 23921092 (Version 2)
Quarter: 2024Q3

REPORT INFORMATION
  Report Type: Spontaneous
  Country: DE (occurrence: DE)
  Receive Date: 20240530
  Receipt Date: 20240802
  Transmission Date: 20241017
  Serious: Yes (Hospitalization)
  Sender: AMGEN
  Company Number: DE-AMGEN-DEUSP2024102932

PATIENT

DRUGS (1)
  1. FILGRASTIM [Suspect]
     Active Substance: FILGRASTIM
     Indication: Haematopoietic stem cell mobilisation
     Dosage: 5 TO 10 MICROGRAM (UG)/KG (KILOGRAM) DAILY
     Route: 058

REACTIONS (3)
  - Unevaluable event [Unknown]
  - Therapeutic product effect incomplete [Unknown]
  - Treatment failure [Unknown]
